FAERS Safety Report 17091710 (Version 1)
Quarter: 2019Q4

REPORT INFORMATION
  Report Type: Spontaneous
  Country: US (occurrence: US)
  Receive Date: 20191031
  Receipt Date: 20191031
  Transmission Date: 20200122
  Serious: No
  Sender: FDA-Public Use
  Company Number: None

PATIENT
  Age: 89 Year
  Sex: Male
  Weight: 76 kg

DRUGS (1)
  1. HEPARIN/SODIUM CHLORIDE [Suspect]
     Active Substance: HEPARIN SODIUM\SODIUM CHLORIDE
     Dates: start: 20190824, end: 20190829

REACTIONS (4)
  - Rectal haemorrhage [None]
  - Gastrointestinal haemorrhage [None]
  - Shock [None]
  - Gastric haemorrhage [None]

NARRATIVE: CASE EVENT DATE: 20190829
